FAERS Safety Report 6828061-0 (Version None)
Quarter: 2010Q3

REPORT INFORMATION
  Report Type: 
  Country: None (occurrence: None)
  Receive Date: 20100709
  Receipt Date: 20100708
  Transmission Date: 20110219
  Serious: Yes (Hospitalization)
  Sender: FDA-Public Use
  Company Number: B0664248A

PATIENT
  Sex: Male

DRUGS (3)
  1. REQUIP [Suspect]
     Indication: PARKINSON'S DISEASE
     Dosage: 22MG PER DAY
     Route: 048
  2. MODOPAR [Suspect]
     Indication: PARKINSON'S DISEASE
     Dosage: 125MG FOUR TIMES PER DAY
     Route: 048
  3. MOTILIUM [Concomitant]
     Route: 065

REACTIONS (6)
  - DYSSTASIA [None]
  - FACIAL ASYMMETRY [None]
  - FALL [None]
  - HAEMATOMA [None]
  - RENAL FAILURE ACUTE [None]
  - RHABDOMYOLYSIS [None]
